FAERS Safety Report 8887606 (Version 1)
Quarter: 2012Q4

REPORT INFORMATION
  Report Type: Spontaneous
  Country: US (occurrence: None)
  Receive Date: 20121101
  Receipt Date: 20121101
  Transmission Date: 20130627
  Serious: No
  Sender: FDA-Public Use
  Company Number: None

PATIENT
  Age: 60 Year
  Sex: Female
  Weight: 97.07 kg

DRUGS (2)
  1. EFFEXOR XR [Suspect]
  2. HUMIRA [Suspect]

REACTIONS (3)
  - Fatigue [None]
  - Confusional state [None]
  - Pain [None]
